FAERS Safety Report 4362587-7 (Version None)
Quarter: 2004Q2

REPORT INFORMATION
  Report Type: 
  Country: None (occurrence: None)
  Receive Date: 20040521
  Receipt Date: 20040511
  Transmission Date: 20050107
  Serious: Yes (Hospitalization)
  Sender: FDA-Public Use
  Company Number: AT-MERCK-0405AUT00005

PATIENT
  Age: 79 Year
  Sex: Male

DRUGS (3)
  1. CORTICOSTEROIDS (UNSPECIFIED) [Concomitant]
     Indication: ASTHMA
     Route: 065
  2. SINGULAIR [Suspect]
     Indication: ASTHMA
     Route: 048
  3. [COMPOSITION UNSPECIFIED] [Concomitant]
     Indication: ASTHMA
     Route: 065

REACTIONS (4)
  - ALLERGIC GRANULOMATOUS ANGIITIS [None]
  - ATAXIA [None]
  - GAIT DISTURBANCE [None]
  - SENSORY DISTURBANCE [None]
